FAERS Safety Report 4610262-3 (Version None)
Quarter: 2005Q1

REPORT INFORMATION
  Report Type: 
  Country: None (occurrence: None)
  Receive Date: 20050301
  Receipt Date: 20041104
  Transmission Date: 20050727
  Serious: No
  Sender: FDA-Public Use
  Company Number: WAES 0411USA01004

PATIENT

DRUGS (1)
  1. ZETIA [Suspect]
     Dosage: 10 MG DAILY PO
     Route: 048

REACTIONS (1)
  - MYALGIA [None]
